FAERS Safety Report 20923230 (Version 5)
Quarter: 2023Q2

REPORT INFORMATION
  Report Type: Report from Study
  Country: CL (occurrence: CL)
  Receive Date: 20220607
  Receipt Date: 20230501
  Transmission Date: 20230722
  Serious: Yes (Other)
  Sender: FDA-Public Use
  Company Number: CL-NOVARTISPH-NVSC2022CL126943

PATIENT
  Age: 46 Year
  Sex: Female

DRUGS (2)
  1. COSENTYX [Suspect]
     Active Substance: SECUKINUMAB
     Indication: Psoriatic arthropathy
     Dosage: 150 MG, QMO
     Route: 058
     Dates: start: 20210325, end: 20210430
  2. COSENTYX [Suspect]
     Active Substance: SECUKINUMAB
     Dosage: UNK (15 FEB UNKNOWN YEAR)
     Route: 065

REACTIONS (12)
  - Pyelonephritis [Unknown]
  - Blood urine present [Unknown]
  - Septic shock [Unknown]
  - Sepsis [Unknown]
  - Urinary tract infection [Unknown]
  - Peripheral swelling [Unknown]
  - Back pain [Unknown]
  - Cough [Unknown]
  - Dysphonia [Unknown]
  - Pyrexia [Unknown]
  - Nausea [Unknown]
  - Laboratory test abnormal [Unknown]
